FAERS Safety Report 8916669 (Version 2)
Quarter: 2013Q1

REPORT INFORMATION
  Report Type: Spontaneous
  Country: ES (occurrence: ES)
  Receive Date: 20121120
  Receipt Date: 20130110
  Transmission Date: 20140127
  Serious: Yes (Other)
  Sender: FDA-Public Use
  Company Number: ES-MERCK-1211ESP007394

PATIENT
  Sex: Male
  Weight: 2 kg

DRUGS (2)
  1. COSOPT [Suspect]
     Dosage: UNK
     Route: 064
     Dates: start: 20090123, end: 200909
  2. TIMOLOL MALEATE [Suspect]
     Route: 064

REACTIONS (4)
  - Foetal growth restriction [Recovered/Resolved]
  - Foetal disorder [Recovered/Resolved]
  - Foetal exposure during pregnancy [Recovered/Resolved]
  - Exposure during breast feeding [Recovered/Resolved]
